FAERS Safety Report 17225392 (Version 2)
Quarter: 2020Q1

REPORT INFORMATION
  Report Type: Spontaneous
  Country: US (occurrence: US)
  Receive Date: 20200102
  Receipt Date: 20200317
  Transmission Date: 20200409
  Serious: No
  Sender: FDA-Public Use
  Company Number: US-SA-2019SA362737

PATIENT
  Age: 14 Month
  Sex: Male
  Weight: 9.74 kg

DRUGS (5)
  1. MIRALAX [Concomitant]
     Active Substance: POLYETHYLENE GLYCOL 3350
     Indication: CONSTIPATION
     Dosage: 4.25 G, QD
     Route: 048
  2. LUMIZYME [Suspect]
     Active Substance: ALGLUCOSIDASE ALFA
     Indication: GLYCOGEN STORAGE DISEASE TYPE II
     Dosage: 150 MG, QOW
     Route: 041
     Dates: start: 201903
  3. ATENOLOL. [Concomitant]
     Active Substance: ATENOLOL
     Indication: HYPERTROPHIC CARDIOMYOPATHY
     Dosage: 5 MG, BID
     Route: 048
  4. EMLA [Concomitant]
     Active Substance: LIDOCAINE\PRILOCAINE
     Indication: ANAESTHESIA
     Dosage: 10 UNK, PRN
     Route: 061
  5. LUMIZYME [Suspect]
     Active Substance: ALGLUCOSIDASE ALFA
     Dosage: 150 MG, QOW
     Route: 041
     Dates: start: 20191211

REACTIONS (1)
  - Rash [Recovered/Resolved]

NARRATIVE: CASE EVENT DATE: 20191211
